FAERS Safety Report 9212782 (Version 1)
Quarter: 2013Q1

REPORT INFORMATION
  Report Type: Spontaneous
  Country: IN (occurrence: None)
  Receive Date: 20120823
  Receipt Date: 20120823
  Transmission Date: 20140127
  Serious: Yes (Other)
  Sender: FDA-Public Use
  Company Number: 2012-00769

PATIENT
  Age: 27 Year
  Sex: Male

DRUGS (3)
  1. CEFIXIME [Suspect]
     Indication: PYREXIA
     Dosage: UNKNOWN (UNKNOWN, UNK), ORAL
  2. CEFIXIME [Suspect]
     Indication: PAIN
     Dosage: UNKNOWN (UNKNOWN, UNK), ORAL
  3. PARACETAMOL (UNKNOWN) [Concomitant]

REACTIONS (1)
  - Stevens-Johnson syndrome [None]
